FAERS Safety Report 6475355-7 (Version None)
Quarter: 2009Q4

REPORT INFORMATION
  Report Type: 
  Country: None (occurrence: None)
  Receive Date: 20091204
  Receipt Date: 20091127
  Transmission Date: 20100525
  Serious: Yes (Other)
  Sender: FDA-Public Use
  Company Number: NL-JNJFOC-20091108087

PATIENT
  Age: 5 Decade
  Sex: Female

DRUGS (6)
  1. TOPAMAX [Suspect]
     Route: 048
  2. TOPAMAX [Suspect]
     Route: 048
  3. TOPAMAX [Suspect]
     Route: 048
  4. TOPAMAX [Suspect]
     Indication: MIGRAINE PROPHYLAXIS
     Route: 048
  5. PARACETAMOL [Concomitant]
     Route: 065
  6. DIANE [Concomitant]
     Route: 065

REACTIONS (2)
  - DIZZINESS [None]
  - OPHTHALMOPLEGIA [None]
